FAERS Safety Report 7641496-1 (Version None)
Quarter: 2011Q3

REPORT INFORMATION
  Report Type: 
  Country: None (occurrence: None)
  Receive Date: 20110722
  Receipt Date: 20110713
  Transmission Date: 20111222
  Serious: Yes (Life-Threatening, Other)
  Sender: FDA-Public Use
  Company Number: MSTR-NO-1107S-0196

PATIENT
  Age: 42 Year
  Sex: Female
  Weight: 73 kg

DRUGS (4)
  1. FRUCTOSE ADDED-GLYCEROL (GLYCEOL) GLYCEROL) [Concomitant]
  2. OXYCODONE HCL [Concomitant]
  3. METASTRON [Suspect]
     Indication: METASTATIC PAIN
     Dosage: NR, SINGLE DOSE, INTRAVENOUS
     Route: 042
     Dates: start: 20090212, end: 20090212
  4. ROPION (FLURBIPROFEN AXETIL) [Concomitant]

REACTIONS (5)
  - NEOPLASM PROGRESSION [None]
  - BONE MARROW FAILURE [None]
  - METASTATIC PAIN [None]
  - BREAST CANCER METASTATIC [None]
  - CONDITION AGGRAVATED [None]
